FAERS Safety Report 8990732 (Version 1)
Quarter: 2012Q4

REPORT INFORMATION
  Report Type: 
  Country: US (occurrence: US)
  Receive Date: 20121228
  Receipt Date: 20121228
  Transmission Date: 20130627
  Serious: No
  Sender: FDA-Public Use
  Company Number: US-PFIZER INC-2012328316

PATIENT
  Age: 88 Year

DRUGS (15)
  1. CELEBREX [Suspect]
     Dosage: 200 mg, 1x/day
     Route: 048
  2. CITALOPRAM HYDROBROMIDE [Concomitant]
     Dosage: 20 mg, 1x/day
     Route: 048
  3. KLOR-CON 10 [Concomitant]
     Dosage: 10 mEq, 1x/day
     Route: 048
  4. SIMVASTATIN [Concomitant]
     Dosage: 40 mg, 1x/day (in the evening)
     Route: 048
  5. OS-CAL D [Concomitant]
     Dosage: 500 mg-unit, 1x/day (1 tablet with food)
     Route: 048
  6. ICAPS [Concomitant]
     Dosage: UNK, 1x/day
     Route: 048
  7. VITAMIN E [Concomitant]
     Dosage: 400 Unit, 1x/day
     Route: 048
  8. OMEGA 3 [Concomitant]
     Dosage: UNK, 1x/day
     Route: 048
  9. ASPIRIN [Concomitant]
     Dosage: 325 mg, 1x/day
     Route: 048
  10. FLUOCINOLONE [Concomitant]
     Dosage: 50 ug, 1x/day
     Route: 048
  11. DOXYCYL [Concomitant]
     Dosage: 100 mg, 1x/day
  12. FUROSEMIDE [Concomitant]
     Dosage: 20 mg, 1x/day
     Route: 048
  13. METOPROLOL SUCCINATE [Concomitant]
     Dosage: 25 mg, 1x/day
     Route: 048
  14. QUINAPRIL HYDROCHLORIDE [Concomitant]
     Dosage: 5 mg, 1x/day
     Route: 048
  15. OMEPRAZOLE [Concomitant]
     Dosage: 40 mg, 1x/day
     Route: 048

REACTIONS (1)
  - Herpes zoster [Unknown]
